FAERS Safety Report 23097503 (Version 1)
Quarter: 2023Q4

REPORT INFORMATION
  Report Type: Spontaneous
  Country: AU (occurrence: AU)
  Receive Date: 20231023
  Receipt Date: 20231023
  Transmission Date: 20240110
  Serious: Yes (Death, Other)
  Sender: FDA-Public Use
  Company Number: AU-JNJFOC-20231050136

PATIENT

DRUGS (3)
  1. DARZALEX [Suspect]
     Active Substance: DARATUMUMAB
     Indication: Plasma cell myeloma
     Dosage: QW CYCLES 1-2, Q2W CYCLES 3-6,  THEN Q4W THEREAFTER UNTIL PD
     Route: 041
  2. LENALIDOMIDE [Suspect]
     Active Substance: LENALIDOMIDE
     Indication: Plasma cell myeloma
     Dosage: DAYS 1-21 UNTIL PD
     Route: 048
  3. DEXAMETHASONE [Suspect]
     Active Substance: DEXAMETHASONE
     Indication: Plasma cell myeloma
     Dosage: DAYS L, 8, 15, 22 UNTIL PD
     Route: 048

REACTIONS (11)
  - Death [Fatal]
  - Pneumonia [Unknown]
  - Neutropenia [Unknown]
  - Thrombocytopenia [Unknown]
  - Plasma cell myeloma [Unknown]
  - Pulmonary embolism [Unknown]
  - Anaemia [Unknown]
  - Lymphopenia [Unknown]
  - Infection [Unknown]
  - Adverse event [Unknown]
  - Treatment noncompliance [Unknown]
